FAERS Safety Report 7549344-5 (Version None)
Quarter: 2011Q2

REPORT INFORMATION
  Report Type: 
  Country: None (occurrence: None)
  Receive Date: 20110615
  Receipt Date: 20010426
  Transmission Date: 20111010
  Serious: Yes (Hospitalization)
  Sender: FDA-Public Use
  Company Number: PHBS2001CA04247

PATIENT
  Sex: Female

DRUGS (2)
  1. EXELON [Suspect]
     Dosage: 4.5 MG, BID
     Route: 048
     Dates: start: 20001224, end: 20010228
  2. EXELON [Suspect]
     Indication: DEMENTIA ALZHEIMER'S TYPE
     Dosage: UNK UKN, UNK
     Route: 048
     Dates: start: 20001025, end: 20001223

REACTIONS (4)
  - TACHYARRHYTHMIA [None]
  - ABASIA [None]
  - DIVERTICULITIS INTESTINAL HAEMORRHAGIC [None]
  - CEREBROVASCULAR ACCIDENT [None]
